FAERS Safety Report 5595823-X (Version None)
Quarter: 2008Q1

REPORT INFORMATION
  Report Type: 
  Country: None (occurrence: None)
  Receive Date: 20080118
  Receipt Date: 20080109
  Transmission Date: 20080703
  Serious: Yes (Life-Threatening)
  Sender: FDA-Public Use
  Company Number: FI-JNJFOC-20080103208

PATIENT
  Age: 76 Year
  Sex: Female

DRUGS (12)
  1. TRAMADOL HCL [Suspect]
     Route: 065
  2. TRAMADOL HCL [Suspect]
     Indication: BACK PAIN
     Route: 065
  3. PANTOPRAZOLE SODIUM [Concomitant]
     Route: 065
  4. HYDROXYCHLOROQUINE SULFATE [Concomitant]
     Route: 065
  5. FUROSEMIDE [Concomitant]
     Route: 065
  6. MISOPROSTOL [Concomitant]
     Route: 065
  7. TRIMETHOPRIM [Concomitant]
     Route: 065
  8. ISOSORBIDE MONONITRATE [Concomitant]
     Route: 065
  9. CALCIUM LACTOGLUCONATE [Concomitant]
     Route: 065
  10. ZOPICLONE [Concomitant]
     Route: 065
  11. CALCITON [Concomitant]
     Route: 065
  12. LACTULOSE [Concomitant]
     Route: 065

REACTIONS (6)
  - BLOOD CREATINE PHOSPHOKINASE MB INCREASED [None]
  - HYPONATRAEMIA [None]
  - NORMOCHROMIC NORMOCYTIC ANAEMIA [None]
  - OVERDOSE [None]
  - RENAL FAILURE ACUTE [None]
  - RESPIRATORY ARREST [None]
